FAERS Safety Report 18609458 (Version 1)
Quarter: 2020Q4

REPORT INFORMATION
  Report Type: Spontaneous
  Country: GB (occurrence: GB)
  Receive Date: 20201214
  Receipt Date: 20201214
  Transmission Date: 20210114
  Serious: Yes (Other)
  Sender: FDA-Public Use
  Company Number: GB-TEVA-2020-GB-1856973

PATIENT
  Age: 90 Year
  Sex: Female
  Weight: 74 kg

DRUGS (9)
  1. RAMIPRIL. [Concomitant]
     Active Substance: RAMIPRIL
     Dosage: 1 DF
     Dates: start: 20200319
  2. PARACETAMOL [Concomitant]
     Active Substance: ACETAMINOPHEN
     Dosage: TAKE 1 OR 2 4 TIMES A DAY.
     Dates: start: 20200319
  3. TRIMETHOPRIM. [Suspect]
     Active Substance: TRIMETHOPRIM
     Dosage: 400 MG
     Dates: start: 20201112
  4. ATORVASTATIN [Concomitant]
     Active Substance: ATORVASTATIN
     Dosage: 1 DF
     Dates: start: 20200319
  5. DOXAZOSIN [Concomitant]
     Active Substance: DOXAZOSIN MESYLATE
     Dosage: 2 DF
     Dates: start: 20200319
  6. LACTULOSE. [Concomitant]
     Active Substance: LACTULOSE
     Dosage: 30 ML
     Dates: start: 20201030, end: 20201109
  7. FLUCONAZOLE. [Concomitant]
     Active Substance: FLUCONAZOLE
     Dosage: 2 IMMEDIATELY THEN 1 DAILY
     Dates: start: 20200901, end: 20200908
  8. MICONAZOLE. [Concomitant]
     Active Substance: MICONAZOLE
     Dosage: USE TO DENTURES. 2 DF
     Dates: start: 20200901, end: 20200906
  9. GAVISCON ADVANCE [Concomitant]
     Active Substance: POTASSIUM BICARBONATE\SODIUM ALGINATE
     Dosage: 5-10ML FOUR TIMES A DAY.
     Dates: start: 20200319

REACTIONS (2)
  - Lip swelling [Recovered/Resolved]
  - Swelling face [Unknown]
